FAERS Safety Report 7782075-5 (Version None)
Quarter: 2011Q3

REPORT INFORMATION
  Report Type: 
  Country: None (occurrence: None)
  Receive Date: 20110927
  Receipt Date: 20110915
  Transmission Date: 20111222
  Serious: Yes (Hospitalization)
  Sender: FDA-Public Use
  Company Number: US-ELI_LILLY_AND_COMPANY-US201109004717

PATIENT
  Age: 67 Year
  Sex: Male

DRUGS (6)
  1. LANTUS [Concomitant]
     Dosage: 100 U, EACH EVENING
  2. ANTIHYPERTENSIVES [Concomitant]
     Dosage: UNK
  3. HUMALOG [Suspect]
     Indication: DIABETES MELLITUS
     Dosage: 32 DF, TID
  4. METFORMIN HCL [Concomitant]
     Dosage: 2000 MG, UNKNOWN
  5. GLIPIZIDE [Concomitant]
     Dosage: 20 MG, UNKNOWN
  6. EPIPEN [Concomitant]
     Dosage: UNK

REACTIONS (5)
  - HOSPITALISATION [None]
  - MOBILITY DECREASED [None]
  - BLOOD GLUCOSE DECREASED [None]
  - DIABETES MELLITUS INADEQUATE CONTROL [None]
  - MULTIFOCAL MOTOR NEUROPATHY [None]
